FAERS Safety Report 14475952 (Version 2)
Quarter: 2018Q1

REPORT INFORMATION
  Report Type: Spontaneous
  Country: FR (occurrence: FR)
  Receive Date: 20180201
  Receipt Date: 20180207
  Transmission Date: 20180509
  Serious: Yes (Hospitalization)
  Sender: FDA-Public Use
  Company Number: FR-PFIZER INC-2018040192

PATIENT
  Sex: Female

DRUGS (2)
  1. XANAX [Suspect]
     Active Substance: ALPRAZOLAM
     Dosage: UNK
     Route: 065
  2. SERESTA [Suspect]
     Active Substance: OXAZEPAM
     Dosage: UNK
     Route: 065

REACTIONS (2)
  - Drug dependence [Not Recovered/Not Resolved]
  - Somnolence [Unknown]
